FAERS Safety Report 10359763 (Version 4)
Quarter: 2015Q2

REPORT INFORMATION
  Report Type: Spontaneous
  Country: IE (occurrence: IE)
  Receive Date: 20140804
  Receipt Date: 20150423
  Transmission Date: 20150821
  Serious: Yes (Hospitalization)
  Sender: FDA-Public Use
  Company Number: IE-TAKEDA-2014JNJ004052

PATIENT

DRUGS (11)
  1. OLIVE OIL [Concomitant]
     Active Substance: OLIVE OIL
     Route: 065
  2. NSA [Concomitant]
     Active Substance: UNSPECIFIED INGREDIENT
     Dosage: 75 MG, QD
     Route: 065
  3. VELCADE [Suspect]
     Active Substance: BORTEZOMIB
     Indication: PLASMA CELL MYELOMA
     Dosage: 1 MG/M2, UNK
     Route: 042
     Dates: start: 20130125
  4. DEXAMETHASONE. [Concomitant]
     Active Substance: DEXAMETHASONE
     Dosage: 20 MG, UNK
  5. REVLIMID [Concomitant]
     Active Substance: LENALIDOMIDE
     Dosage: 10 MG, UNK
  6. VALTREX [Concomitant]
     Active Substance: VALACYCLOVIR HYDROCHLORIDE
     Dosage: 500 MG, BID
     Route: 065
  7. MYCOSTATIN [Concomitant]
     Active Substance: NYSTATIN
     Dosage: UNK
     Route: 065
  8. LOSEC [Concomitant]
     Active Substance: OMEPRAZOLE
     Dosage: 40 MG, UNK
     Route: 065
  9. KIN [Concomitant]
     Dosage: UNK
     Route: 065
  10. ASPIRIN. [Concomitant]
     Active Substance: ASPIRIN
     Dosage: 75 MG, UNK
     Route: 065
  11. CARDICOR [Concomitant]
     Active Substance: BISOPROLOL
     Dosage: 2.5 MG, UNK
     Route: 065

REACTIONS (10)
  - Asthenia [Unknown]
  - Respiratory tract infection [Unknown]
  - Anaemia [Unknown]
  - Pain in extremity [Recovering/Resolving]
  - Tongue coated [Not Recovered/Not Resolved]
  - Malaise [Unknown]
  - Muscle spasms [Unknown]
  - Fatigue [Unknown]
  - Movement disorder [Unknown]
  - Insomnia [Unknown]

NARRATIVE: CASE EVENT DATE: 2014
